FAERS Safety Report 7148962-6 (Version None)
Quarter: 2010Q4

REPORT INFORMATION
  Report Type: 
  Country: None (occurrence: None)
  Receive Date: 20101209
  Receipt Date: 20101203
  Transmission Date: 20110411
  Serious: Yes (Other)
  Sender: FDA-Public Use
  Company Number: D0067638A

PATIENT
  Sex: Male
  Weight: 97 kg

DRUGS (5)
  1. REQUIP [Suspect]
     Indication: PARKINSON'S DISEASE
     Dosage: 32MG IN THE MORNING
     Route: 048
     Dates: start: 20090101
  2. CLARIUM [Suspect]
     Indication: PARKINSON'S DISEASE
     Dosage: 250MG PER DAY
     Route: 048
  3. STALEVO 100 [Concomitant]
     Indication: PARKINSON'S DISEASE
     Dosage: 125MG THREE TIMES PER DAY
     Route: 048
  4. TAMSULOSIN [Concomitant]
     Route: 065
  5. AZILECT [Concomitant]
     Dosage: 1MG PER DAY
     Route: 048

REACTIONS (7)
  - CHRONOTROPIC INCOMPETENCE [None]
  - DYSPNOEA EXERTIONAL [None]
  - EXERCISE ELECTROCARDIOGRAM ABNORMAL [None]
  - HEART RATE DECREASED [None]
  - HYPERTONIC BLADDER [None]
  - PARKINSON'S DISEASE [None]
  - PERFORMANCE STATUS DECREASED [None]
